FAERS Safety Report 6448818-8 (Version None)
Quarter: 2009Q4

REPORT INFORMATION
  Report Type: 
  Country: None (occurrence: None)
  Receive Date: 20091119
  Receipt Date: 20091119
  Transmission Date: 20100525
  Serious: No
  Sender: FDA-Public Use
  Company Number: None

PATIENT
  Sex: Female

DRUGS (1)
  1. LEXAPRO [Suspect]
     Dosage: 10 MILLIGRAMS

REACTIONS (7)
  - ABNORMAL SENSATION IN EYE [None]
  - BALANCE DISORDER [None]
  - DIZZINESS [None]
  - DYSKINESIA [None]
  - HYPERSENSITIVITY [None]
  - SLEEP DISORDER [None]
  - SUICIDAL IDEATION [None]
